FAERS Safety Report 19443714 (Version 2)
Quarter: 2022Q1

REPORT INFORMATION
  Report Type: Spontaneous
  Country: LV (occurrence: LV)
  Receive Date: 20210621
  Receipt Date: 20220302
  Transmission Date: 20220423
  Serious: Yes (Hospitalization, Other)
  Sender: FDA-Public Use
  Company Number: LV-VIIV HEALTHCARE ULC-LV2021EME130976

PATIENT
  Age: 61 Year
  Sex: Female

DRUGS (1)
  1. ABACAVIR SULFATE\DOLUTEGRAVIR SODIUM\LAMIVUDINE [Suspect]
     Active Substance: ABACAVIR SULFATE\DOLUTEGRAVIR SODIUM\LAMIVUDINE
     Indication: HIV infection
     Dosage: UNK
     Dates: start: 2017, end: 2020

REACTIONS (10)
  - Tracheitis [Unknown]
  - Coronary artery disease [Unknown]
  - Pulmonary arterial hypertension [Unknown]
  - Arteriosclerosis coronary artery [Unknown]
  - Blood pressure increased [Unknown]
  - Malaise [Unknown]
  - Hepatosplenomegaly [Unknown]
  - Essential hypertension [Unknown]
  - Hypercholesterolaemia [Unknown]
  - Intentional product misuse [Unknown]

NARRATIVE: CASE EVENT DATE: 20190101
